FAERS Safety Report 4326545-0 (Version None)
Quarter: 2004Q1

REPORT INFORMATION
  Report Type: 
  Country: None (occurrence: None)
  Receive Date: 20040326
  Receipt Date: 20040326
  Transmission Date: 20041129
  Serious: Yes (Hospitalization)
  Sender: FDA-Public Use
  Company Number: None

PATIENT
  Sex: Female

DRUGS (9)
  1. PROLEUKIN [Suspect]
     Indication: RENAL CELL CARCINOMA STAGE UNSPECIFIED
     Dosage: IL-2 7MU/M2
     Dates: start: 20040301, end: 20040312
  2. ZOMETA [Suspect]
     Dosage: 4MG IV Q 4 WKS
     Route: 042
     Dates: start: 20040301
  3. LISINOPRIL [Concomitant]
  4. M.V.I. [Concomitant]
  5. CIMETIDINE HCL [Concomitant]
  6. TYLENOL (CAPLET) [Concomitant]
  7. BENADRYL [Concomitant]
  8. LORTAB [Concomitant]
  9. B12 INJ [Concomitant]

REACTIONS (1)
  - ACUTE MYOCARDIAL INFARCTION [None]
